FAERS Safety Report 6967542-6 (Version None)
Quarter: 2010Q3

REPORT INFORMATION
  Report Type: 
  Country: None (occurrence: None)
  Receive Date: 20100901
  Receipt Date: 20100820
  Transmission Date: 20110219
  Serious: Yes (Other)
  Sender: FDA-Public Use
  Company Number: 2010MA001962

PATIENT
  Age: 74 Year
  Sex: Female

DRUGS (1)
  1. GABAPENTIN [Suspect]
     Indication: BACK PAIN
     Dosage: 300 MG;QD;PO
     Route: 048
     Dates: start: 20100329, end: 20100423

REACTIONS (10)
  - ARTHRALGIA [None]
  - BACK PAIN [None]
  - BLISTER [None]
  - BURNING SENSATION [None]
  - DERMATITIS [None]
  - GINGIVAL DISORDER [None]
  - JOINT SWELLING [None]
  - ORAL DISORDER [None]
  - TREATMENT NONCOMPLIANCE [None]
  - WEIGHT INCREASED [None]
